FAERS Safety Report 4322512-1 (Version None)
Quarter: 2004Q1

REPORT INFORMATION
  Report Type: 
  Country: None (occurrence: None)
  Receive Date: 20040323
  Receipt Date: 20040323
  Transmission Date: 20041129
  Serious: Yes (Other)
  Sender: FDA-Public Use
  Company Number: None

PATIENT
  Age: 45 Year
  Sex: Male
  Weight: 65.7716 kg

DRUGS (2)
  1. EFFEXOR [Suspect]
     Indication: ANTIDEPRESSANT THERAPY
     Dosage: 1 PER DAY ORAL
     Route: 048
     Dates: start: 20040323, end: 20040325
  2. EFFEXOR [Suspect]
     Indication: HORMONE LEVEL ABNORMAL
     Dosage: 1 PER DAY ORAL
     Route: 048
     Dates: start: 20040323, end: 20040325

REACTIONS (6)
  - ASTHENIA [None]
  - DISTURBANCE IN ATTENTION [None]
  - HYPERHIDROSIS [None]
  - HYPERSOMNIA [None]
  - INDIFFERENCE [None]
  - SUICIDAL IDEATION [None]
